FAERS Safety Report 11241581 (Version 3)
Quarter: 2015Q4

REPORT INFORMATION
  Report Type: Spontaneous
  Country: JP (occurrence: JP)
  Receive Date: 20150706
  Receipt Date: 20151229
  Transmission Date: 20160304
  Serious: Yes (Hospitalization, Other)
  Sender: FDA-Public Use
  Company Number: JP-BAYER-2015-370051

PATIENT
  Age: 70 Year
  Sex: Male

DRUGS (1)
  1. BAYASPIRIN [Suspect]
     Active Substance: ASPIRIN
     Dosage: 100 MG, QD
     Route: 048

REACTIONS (2)
  - Eosinophilic bronchitis [Recovered/Resolved]
  - Aspirin-exacerbated respiratory disease [Recovered/Resolved]
